FAERS Safety Report 9495200 (Version 2)
Quarter: 2013Q4

REPORT INFORMATION
  Report Type: Spontaneous
  Country: CA (occurrence: CA)
  Receive Date: 20130903
  Receipt Date: 20131015
  Transmission Date: 20140711
  Serious: Yes (Hospitalization, Disabling)
  Sender: FDA-Public Use
  Company Number: CA-ROCHE-1269780

PATIENT
  Sex: Female

DRUGS (8)
  1. LUCENTIS [Suspect]
     Indication: AGE-RELATED MACULAR DEGENERATION
     Route: 050
     Dates: start: 2010
  2. HYZAAR (CANADA) [Concomitant]
  3. SENNOSIDE [Concomitant]
  4. LIPITOR [Concomitant]
  5. ADALAT [Concomitant]
  6. ATENOLOL [Concomitant]
  7. RIVASA [Concomitant]
  8. DOCUSATE SODIUM [Concomitant]

REACTIONS (1)
  - Myocardial infarction [Recovered/Resolved with Sequelae]
